FAERS Safety Report 9348222 (Version 3)
Quarter: 2014Q1

REPORT INFORMATION
  Report Type: Spontaneous
  Country: US (occurrence: US)
  Receive Date: 20130614
  Receipt Date: 20140219
  Transmission Date: 20141002
  Serious: Yes (Hospitalization, Other)
  Sender: FDA-Public Use
  Company Number: US-BAYER-2013-070573

PATIENT
  Age: 32 Year
  Sex: Female
  Weight: 56.69 kg

DRUGS (10)
  1. YAZ [Suspect]
     Indication: ACNE
     Dosage: UNK
     Dates: start: 201105, end: 201106
  2. YAZ [Suspect]
     Indication: PREMENSTRUAL SYNDROME
  3. VOLTAREN [Concomitant]
  4. ATENOLOL [Concomitant]
  5. FLEXERIL [Concomitant]
  6. NEURONTIN [Concomitant]
  7. TRAMADOL [Concomitant]
     Dosage: 100 MG, BID
  8. LEXAPRO [Concomitant]
     Dosage: DAILY
  9. CLONAZEPAM [Concomitant]
     Dosage: 0.5 MG, BID
  10. NAPROXEN [Concomitant]
     Dosage: 500 MG, BID AS NEEDED

REACTIONS (6)
  - Cerebrovascular accident [None]
  - Pulmonary embolism [None]
  - Deep vein thrombosis [None]
  - Pain [None]
  - Pain [None]
  - Off label use [None]
